FAERS Safety Report 25904640 (Version 1)
Quarter: 2025Q4

REPORT INFORMATION
  Report Type: Spontaneous
  Country: US (occurrence: US)
  Receive Date: 20251010
  Receipt Date: 20251010
  Transmission Date: 20260117
  Serious: No
  Sender: ABBVIE
  Company Number: US-ABBVIE-6487845

PATIENT
  Age: 43 Year
  Sex: Female
  Weight: 53 kg

DRUGS (9)
  1. BOTOX COSMETIC [Suspect]
     Active Substance: ONABOTULINUMTOXINA
     Indication: Muscle hypertrophy
     Dosage: TIME INTERVAL: AS NECESSARY: DOSE: 30 UNITS, FREQUENCY: EVERY 3 MONTHS
     Route: 030
     Dates: start: 20250603, end: 20250603
  2. BOTOX COSMETIC [Suspect]
     Active Substance: ONABOTULINUMTOXINA
     Indication: Muscle hypertrophy
     Dosage: TIME INTERVAL: AS NECESSARY
     Route: 065
     Dates: start: 20251002, end: 20251002
  3. BOTOX COSMETIC [Suspect]
     Active Substance: ONABOTULINUMTOXINA
     Indication: Muscle hypertrophy
     Dosage: TIME INTERVAL: AS NECESSARY
     Route: 065
     Dates: start: 2025, end: 2025
  4. BOTOX COSMETIC [Suspect]
     Active Substance: ONABOTULINUMTOXINA
     Indication: Muscle hypertrophy
     Dosage: TIME INTERVAL: AS NECESSARY
     Route: 065
     Dates: start: 2025, end: 2025
  5. BOTOX COSMETIC [Suspect]
     Active Substance: ONABOTULINUMTOXINA
     Indication: Muscle hypertrophy
     Dosage: TIME INTERVAL: AS NECESSARY
     Route: 065
     Dates: start: 2025, end: 2025
  6. BOTOX COSMETIC [Suspect]
     Active Substance: ONABOTULINUMTOXINA
     Indication: Muscle hypertrophy
     Dosage: TIME INTERVAL: AS NECESSARY
     Route: 065
     Dates: start: 2025, end: 2025
  7. LUPRON [Concomitant]
     Active Substance: LEUPROLIDE ACETATE
     Indication: Breast cancer
  8. ANASTROZOLE [Concomitant]
     Active Substance: ANASTROZOLE
     Indication: Breast cancer
  9. VERZENIO [Concomitant]
     Active Substance: ABEMACICLIB
     Indication: Breast cancer

REACTIONS (1)
  - Cyst rupture [Not Recovered/Not Resolved]

NARRATIVE: CASE EVENT DATE: 20250924
